FAERS Safety Report 7413186-1 (Version None)
Quarter: 2011Q2

REPORT INFORMATION
  Report Type: 
  Country: None (occurrence: None)
  Receive Date: 20110413
  Receipt Date: 20110407
  Transmission Date: 20111010
  Serious: Yes (Death)
  Sender: FDA-Public Use
  Company Number: JP-PFIZER INC-2010144843

PATIENT
  Age: 44 Year
  Sex: Male

DRUGS (26)
  1. CYTOTEC [Concomitant]
     Route: 048
  2. DORMICUM /AUS/ [Concomitant]
     Route: 042
  3. PROPOFOL [Concomitant]
     Route: 042
  4. HEPARIN [Concomitant]
     Route: 042
  5. LOXONIN [Concomitant]
  6. CIPROFLOXACIN HCL [Concomitant]
  7. DECADRON [Concomitant]
  8. PITRESSIN [Concomitant]
     Route: 042
  9. ZOSYN [Suspect]
     Indication: PYOTHORAX
     Dosage: 4.5 G, 3X/DAY
     Route: 041
     Dates: start: 20100816, end: 20100910
  10. MEROPEN [Concomitant]
     Route: 042
  11. INOVAN [Concomitant]
     Route: 042
  12. VANCOMYCIN [Concomitant]
  13. OMEPRAL [Concomitant]
  14. MIRACLID [Concomitant]
     Route: 042
  15. NOREPINEPHRINE [Concomitant]
     Route: 042
  16. VENOGLOBULIN [Concomitant]
     Route: 042
  17. FOY [Concomitant]
     Route: 042
  18. ATARAX [Concomitant]
  19. FLURBIPROFEN [Concomitant]
     Route: 042
  20. FUTHAN [Concomitant]
     Route: 042
  21. PENTAZOCINE LACTATE [Concomitant]
  22. DALACIN-S [Concomitant]
     Route: 042
  23. SOLU-CORTEF [Concomitant]
     Route: 042
  24. LASIX [Concomitant]
  25. ELASPOL [Concomitant]
     Route: 042
  26. MICAFUNGIN SODIUM [Concomitant]
     Route: 042

REACTIONS (3)
  - SEPTIC SHOCK [None]
  - PYOTHORAX [None]
  - PSEUDOMEMBRANOUS COLITIS [None]
